FAERS Safety Report 4716504-8 (Version None)
Quarter: 2005Q3

REPORT INFORMATION
  Report Type: 
  Country: None (occurrence: None)
  Receive Date: 20050719
  Receipt Date: 20050711
  Transmission Date: 20060218
  Serious: Yes (Other)
  Sender: FDA-Public Use
  Company Number: DE-BRISTOL-MYERS SQUIBB COMPANY-13034442

PATIENT

DRUGS (1)
  1. ETOPOPHOS [Suspect]

REACTIONS (1)
  - PERICARDITIS [None]
